FAERS Safety Report 4262915-7 (Version None)
Quarter: 2004Q1

REPORT INFORMATION
  Report Type: 
  Country: None (occurrence: None)
  Receive Date: 20040102
  Receipt Date: 20040102
  Transmission Date: 20041129
  Serious: Yes (Other)
  Sender: FDA-Public Use
  Company Number: None

PATIENT
  Sex: Female
  Weight: 99.7913 kg

DRUGS (10)
  1. AVANDAMET [Suspect]
     Indication: HYPERGLYCAEMIA
     Dosage: TAKE 2
     Dates: start: 20030827, end: 20031125
  2. BEXTRA [Concomitant]
  3. LOZOL [Concomitant]
  4. PRILOSEC [Concomitant]
  5. GLUCOTROL [Concomitant]
  6. ZESTRIL [Concomitant]
  7. VALTREX [Concomitant]
  8. SOMA [Concomitant]
  9. CLIMARA [Concomitant]
  10. LIPITOR [Concomitant]

REACTIONS (2)
  - BLOOD GLUCOSE INCREASED [None]
  - PHARMACEUTICAL PRODUCT COMPLAINT [None]
